FAERS Safety Report 10158301 (Version 2)
Quarter: 2014Q2

REPORT INFORMATION
  Report Type: Spontaneous
  Country: VN (occurrence: VN)
  Receive Date: 20140507
  Receipt Date: 20140507
  Transmission Date: 20141212
  Serious: Yes (Other)
  Sender: FDA-Public Use
  Company Number: VN-TEVA-476457USA

PATIENT
  Age: 34 Year
  Sex: Female

DRUGS (2)
  1. POSTINOR I [Suspect]
     Indication: POST COITAL CONTRACEPTION
     Route: 048
     Dates: start: 201403, end: 201403
  2. OMEGA 3 FISH OIL [Concomitant]
     Indication: PRODUCT USED FOR UNKNOWN INDICATION

REACTIONS (2)
  - Abortion induced [Recovered/Resolved]
  - Drug ineffective [Recovered/Resolved]
